FAERS Safety Report 25257006 (Version 1)
Quarter: 2025Q2

REPORT INFORMATION
  Report Type: Spontaneous
  Country: US (occurrence: None)
  Receive Date: 20250430
  Receipt Date: 20250430
  Transmission Date: 20250717
  Serious: Yes (Hospitalization)
  Sender: FDA-CTU
  Company Number: None

PATIENT
  Age: 34 Year
  Sex: Male
  Weight: 101.4 kg

DRUGS (2)
  1. AZITHROMYCIN [Suspect]
     Active Substance: AZITHROMYCIN
     Indication: Bronchitis
     Dosage: FREQUENCY : DAILY;?
     Dates: start: 20250426, end: 20250430
  2. BENZONATATE [Concomitant]
     Active Substance: BENZONATATE
     Dates: start: 20250426, end: 20250430

REACTIONS (8)
  - Chest pain [None]
  - Pleuritic pain [None]
  - Chest discomfort [None]
  - Nausea [None]
  - Hyperhidrosis [None]
  - Electrocardiogram T wave inversion [None]
  - Dyspnoea [None]
  - Troponin T increased [None]

NARRATIVE: CASE EVENT DATE: 20250430
